FAERS Safety Report 24385073 (Version 1)
Quarter: 2024Q4

REPORT INFORMATION
  Report Type: Spontaneous
  Country: US (occurrence: US)
  Receive Date: 20241001
  Receipt Date: 20241001
  Transmission Date: 20250114
  Serious: No
  Sender: ROCHE
  Company Number: US-ROCHE-10000094635

PATIENT
  Age: 5 Month
  Sex: Male
  Weight: 9.07 kg

DRUGS (2)
  1. HEMLIBRA [Suspect]
     Active Substance: EMICIZUMAB-KXWH
     Indication: Factor VIII deficiency
     Dosage: STRENGTH: 30 MG/ML
     Route: 058
     Dates: start: 202405
  2. ADVATE [Concomitant]
     Active Substance: ANTIHEMOPHILIC FACTOR, HUMAN RECOMBINANT

REACTIONS (2)
  - Constipation [Unknown]
  - Oral pain [Unknown]

NARRATIVE: CASE EVENT DATE: 20240918
